FAERS Safety Report 23579436 (Version 3)
Quarter: 2024Q3

REPORT INFORMATION
  Report Type: Report from Study
  Country: CA (occurrence: CA)
  Receive Date: 20240229
  Receipt Date: 20240910
  Transmission Date: 20241017
  Serious: Yes (Other)
  Sender: NOVARTIS
  Company Number: CA-002147023-NVSC2024CA009570

PATIENT
  Age: 48 Year
  Sex: Female

DRUGS (1)
  1. LEQVIO [Suspect]
     Active Substance: INCLISIRAN SODIUM
     Indication: Type IIa hyperlipidaemia
     Dosage: 284 MG (BASELINE, 3 MONTHS AND EVERY 6 MONTHS THEREAFTER)
     Route: 058
     Dates: start: 20231025

REACTIONS (13)
  - Alanine aminotransferase increased [Recovered/Resolved]
  - Alanine aminotransferase increased [Unknown]
  - Glycosylated haemoglobin increased [Recovered/Resolved]
  - Blood chloride increased [Recovered/Resolved]
  - Blood glucose increased [Recovered/Resolved]
  - Gamma-glutamyltransferase increased [Recovered/Resolved]
  - High density lipoprotein increased [Recovered/Resolved]
  - Albumin urine present [Recovered/Resolved]
  - Urine albumin/creatinine ratio increased [Recovered/Resolved]
  - Gamma-glutamyltransferase increased [Unknown]
  - Glycosylated haemoglobin increased [Unknown]
  - Total cholesterol/HDL ratio increased [Unknown]
  - Blood creatine phosphokinase increased [Unknown]

NARRATIVE: CASE EVENT DATE: 20231113
